FAERS Safety Report 6005541-1 (Version None)
Quarter: 2008Q4

REPORT INFORMATION
  Report Type: 
  Country: None (occurrence: None)
  Receive Date: 20081216
  Receipt Date: 20081216
  Transmission Date: 20090506
  Serious: Yes (Other)
  Sender: FDA-Public Use
  Company Number: None

PATIENT
  Age: 41 Year
  Sex: Female
  Weight: 61.2356 kg

DRUGS (2)
  1. TOPAMAX [Suspect]
     Indication: BIPOLAR DISORDER
     Dosage: 25MG 1XDAY PO
     Route: 048
     Dates: start: 20061110, end: 20081215
  2. TOPAMAX [Suspect]
     Indication: POST-TRAUMATIC STRESS DISORDER
     Dosage: 25MG 1XDAY PO
     Route: 048
     Dates: start: 20061110, end: 20081215

REACTIONS (12)
  - ALOPECIA [None]
  - AMNESIA [None]
  - ANAEMIA [None]
  - CHEST PAIN [None]
  - DISORIENTATION [None]
  - MUSCULOSKELETAL STIFFNESS [None]
  - NERVOUS SYSTEM DISORDER [None]
  - OEDEMA PERIPHERAL [None]
  - PAIN IN EXTREMITY [None]
  - SERUM FERRITIN DECREASED [None]
  - THOUGHT BLOCKING [None]
  - VITAMIN B12 DECREASED [None]
